FAERS Safety Report 5346654-7 (Version None)
Quarter: 2007Q2

REPORT INFORMATION
  Report Type: 
  Country: None (occurrence: None)
  Receive Date: 20070605
  Receipt Date: 20070524
  Transmission Date: 20071010
  Serious: Yes (Hospitalization)
  Sender: FDA-Public Use
  Company Number: FR-PFIZER INC-2007042795

PATIENT
  Age: 53 Year
  Sex: Male

DRUGS (2)
  1. ATARAX [Suspect]
     Route: 048
  2. ETANERCEPT [Suspect]
     Route: 058
     Dates: start: 20070331, end: 20070406

REACTIONS (2)
  - KERATITIS HERPETIC [None]
  - VIRAL INFECTION [None]
